FAERS Safety Report 8325462-9 (Version None)
Quarter: 2012Q2

REPORT INFORMATION
  Report Type: 
  Country: None (occurrence: None)
  Receive Date: 20120501
  Receipt Date: 20120426
  Transmission Date: 20120825
  Serious: Yes (Other)
  Sender: FDA-Public Use
  Company Number: PHHY2012NL036083

PATIENT
  Sex: Female
  Weight: 52 kg

DRUGS (10)
  1. METFORMIN HYDROCHLORIDE [Concomitant]
     Dosage: 500 MG, ONCE/SINGLE
     Dates: start: 20110912
  2. CLOZAPINE [Suspect]
     Indication: ANXIETY
     Dosage: 6.25 MG, UNK
     Route: 048
     Dates: start: 20120330
  3. HYDROCOBAMINE [Concomitant]
     Dosage: 1 DF, (1 INJECTION PER TWO MONTHS)
     Dates: start: 20111216
  4. COLECALCIFEROL [Concomitant]
     Dosage: UNK UKN,(3 DROPS PER WEEK)
     Dates: start: 20111228
  5. LACTULOSE [Concomitant]
     Dosage: 30 ML, ONCE/SINGLE
     Dates: start: 20120130
  6. HYDROCHLOROTHIAZIDE [Concomitant]
     Dosage: 25 MG, ONCE/SINGLE
     Dates: start: 20111129
  7. OMEPRAZOLE [Concomitant]
     Dosage: 40 MG, ONCE/SINGLE
     Dates: start: 20110601
  8. PROPRANOLOL HYDROCHLORIDE [Concomitant]
     Dosage: 80 MG, ONCE/SINGLE
     Dates: start: 20110919
  9. ASPIRIN [Concomitant]
     Dosage: 80 MG, ONCE/SINGLE
     Dates: start: 20020101
  10. MAGNESIUM HYDROXIDE TAB [Concomitant]
     Dosage: 4 DF, ONCE/SINGLE
     Dates: start: 20120201

REACTIONS (3)
  - LOSS OF CONSCIOUSNESS [None]
  - URINARY INCONTINENCE [None]
  - CIRCULATORY COLLAPSE [None]
